FAERS Safety Report 7213820-5 (Version None)
Quarter: 2011Q1

REPORT INFORMATION
  Report Type: 
  Country: None (occurrence: None)
  Receive Date: 20110106
  Receipt Date: 20101227
  Transmission Date: 20110831
  Serious: Yes (Other)
  Sender: FDA-Public Use
  Company Number: PHHY2010US88616

PATIENT
  Sex: Female

DRUGS (8)
  1. ARIMIDEX [Suspect]
  2. PROTONIX [Concomitant]
  3. LAMICTAL [Concomitant]
  4. SYNTHROID [Concomitant]
  5. CENTRUM SILVER [Concomitant]
  6. EFFEXOR [Concomitant]
  7. CLONAZEPAM [Concomitant]
  8. FEMARA [Suspect]
     Dosage: 2.5 MG, PER DAY
     Route: 048

REACTIONS (3)
  - FOOT FRACTURE [None]
  - TENDON INJURY [None]
  - FALL [None]
